FAERS Safety Report 25487740 (Version 1)
Quarter: 2025Q2

REPORT INFORMATION
  Report Type: Spontaneous
  Country: US (occurrence: US)
  Receive Date: 20250627
  Receipt Date: 20250627
  Transmission Date: 20250716
  Serious: Yes (Death, Other)
  Sender: AMGEN
  Company Number: US-AMGEN-USASP2025123456

PATIENT

DRUGS (1)
  1. PREDNISONE [Suspect]
     Active Substance: PREDNISONE
     Indication: Immunosuppressant drug therapy
     Route: 065

REACTIONS (16)
  - Nocardiosis [Fatal]
  - Pulmonary nocardiosis [Unknown]
  - Disseminated nocardiosis [Unknown]
  - Anaphylactic reaction [Unknown]
  - Renal failure [Unknown]
  - Leukopenia [Unknown]
  - Thrombocytopenia [Unknown]
  - Hyperkalaemia [Unknown]
  - Angioedema [Unknown]
  - Abdominal discomfort [Unknown]
  - Cutaneous nocardiosis [Unknown]
  - Drug interaction [Unknown]
  - Adverse drug reaction [Unknown]
  - Rash [Unknown]
  - Pruritus [Unknown]
  - Urticaria [Unknown]
